FAERS Safety Report 8266255-0 (Version None)
Quarter: 2012Q2

REPORT INFORMATION
  Report Type: 
  Country: None (occurrence: None)
  Receive Date: 20120406
  Receipt Date: 20120403
  Transmission Date: 20120825
  Serious: Yes (Death)
  Sender: FDA-Public Use
  Company Number: CA-ABBOTT-12P-028-0917753-00

PATIENT
  Sex: Male
  Weight: 78.542 kg

DRUGS (4)
  1. LUPRON DEPOT [Suspect]
  2. LUPRON DEPOT [Suspect]
     Indication: PROSTATE CANCER
     Route: 030
     Dates: start: 20110528
  3. LUPRON DEPOT [Suspect]
     Dates: start: 20111003
  4. LUPRON DEPOT [Suspect]
     Indication: PROSTATE CANCER
     Dates: start: 20120201

REACTIONS (1)
  - DEATH [None]
